FAERS Safety Report 6442764-1 (Version None)
Quarter: 2009Q4

REPORT INFORMATION
  Report Type: 
  Country: None (occurrence: None)
  Receive Date: 20091117
  Receipt Date: 20091106
  Transmission Date: 20100525
  Serious: Yes (Death)
  Sender: FDA-Public Use
  Company Number: US-ROCHE-667031

PATIENT
  Age: 37 Year
  Sex: Female

DRUGS (5)
  1. OSELTAMIVIR [Suspect]
     Indication: AVIAN INFLUENZA
     Route: 065
     Dates: start: 20050909, end: 20050909
  2. CIPROFLOXACIN [Suspect]
     Indication: AVIAN INFLUENZA
     Route: 065
     Dates: start: 20050903, end: 20050910
  3. LEVOFLOXACIN [Suspect]
     Indication: AVIAN INFLUENZA
     Route: 065
     Dates: start: 20050906, end: 20050901
  4. MEROPENEM [Suspect]
     Indication: AVIAN INFLUENZA
     Route: 065
     Dates: start: 20050906, end: 20050901
  5. METHYLPREDNISOLONE 4MG TAB [Suspect]
     Indication: AVIAN INFLUENZA
     Route: 065
     Dates: start: 20050906, end: 20050901

REACTIONS (1)
  - ACUTE RESPIRATORY DISTRESS SYNDROME [None]
